FAERS Safety Report 13421962 (Version 4)
Quarter: 2018Q4

REPORT INFORMATION
  Report Type: Spontaneous
  Country: US (occurrence: US)
  Receive Date: 20170410
  Receipt Date: 20181015
  Transmission Date: 20190204
  Serious: No
  Sender: FDA-Public Use
  Company Number: US-PFIZER INC-2016318197

PATIENT
  Age: 57 Year
  Sex: Female

DRUGS (30)
  1. LYRICA [Suspect]
     Active Substance: PREGABALIN
     Indication: NEURALGIA
     Dosage: 75 MG, 1X/DAY (IN AM)
     Route: 048
  2. LYRICA [Suspect]
     Active Substance: PREGABALIN
     Indication: NEUROPATHY PERIPHERAL
     Dosage: 50 MG, DAILY (AM)
     Route: 048
  3. CALCIUM MAGNESIUM + VITAMIN D3 [Concomitant]
     Indication: GASTRIC BYPASS
     Dosage: 1 DF, 2X/DAY  (CALCIUM-500MG, COLECALCIFEROL-800IU, MAGNESIUM-80 MG) (1 (BF, D))
     Dates: start: 2002
  4. FENTANYL. [Concomitant]
     Active Substance: FENTANYL
     Indication: PAIN
     Dosage: 25 UG, (1 EVERY 72 HRS)
     Route: 062
  5. STOOL SOFTENER (DOCUSATE) [Concomitant]
     Active Substance: DOCUSATE
     Indication: GASTRIC BYPASS
     Dosage: 100 MG, UNK (1 (BF, L,D))
     Dates: start: 2003
  6. TURMERIC [Concomitant]
     Active Substance: HERBALS\TURMERIC
     Dosage: UNK
  7. LYRICA [Suspect]
     Active Substance: PREGABALIN
     Indication: NERVE INJURY
     Dosage: 75 MG, DAILY (PM)
     Route: 048
  8. FENTANYL. [Concomitant]
     Active Substance: FENTANYL
     Dosage: UNK (25 MCG/HR, 1 PATCH(ES), TOP, Q72 HR)
  9. VITAMIN B12 [Concomitant]
     Active Substance: CYANOCOBALAMIN
     Dosage: UNK
  10. ZINC. [Concomitant]
     Active Substance: ZINC
     Dosage: UNK
  11. ADVIL [Concomitant]
     Active Substance: IBUPROFEN
     Dosage: 200 MG, 4X/DAY (Q6 HRS)
     Route: 048
  12. LYRICA [Suspect]
     Active Substance: PREGABALIN
     Dosage: 100 MG, UNK
  13. VITAMIN C [Concomitant]
     Active Substance: ASCORBIC ACID
     Indication: GASTRIC BYPASS
     Dosage: 500 MG, 1X/DAY (1 (L)) (CHEWED)
     Dates: start: 2003
  14. MELOXICAM. [Concomitant]
     Active Substance: MELOXICAM
     Dosage: 7.5 MG, DAILY
     Route: 048
  15. CENTRUM [Concomitant]
     Active Substance: VITAMINS
     Dosage: 1 DF, DAILY
  16. SYNTHROID [Concomitant]
     Active Substance: LEVOTHYROXINE SODIUM
     Indication: THYROID THERAPY
     Dosage: UNK, 1X/DAY (1 (BF))
  17. SYNTHROID [Concomitant]
     Active Substance: LEVOTHYROXINE SODIUM
     Dosage: 88 UG, DAILY
     Route: 048
  18. WELLBUTRIN [Concomitant]
     Active Substance: BUPROPION HYDROCHLORIDE
     Indication: ANXIETY
  19. NORETHINDRONE ACETATE AND ETHINYL ESTRADIOL [Concomitant]
     Active Substance: ETHINYL ESTRADIOL\NORETHINDRONE ACETATE
     Dosage: 1 DF, DAILY [ETHINYL ESTRADIOL: 1 MG]- [NORETHINDRONE ACETATE: 0.5 MG]
     Route: 048
  20. CALCIUM 500+D [Concomitant]
     Active Substance: CALCIUM\VITAMIN D
     Dosage: 2 DF, DAILY (CHEWED)
  21. ESTRADIOL, NORETHISTERONE ACETATE [Concomitant]
     Active Substance: ESTRADIOL\NORETHINDRONE ACETATE
     Indication: HORMONE REPLACEMENT THERAPY
     Dosage: 1 DF, 1X/DAY (ESTRADIOL- 1MG, NORETHINDRONE ACETATE-0.5MG)
     Dates: start: 2009
  22. WELLBUTRIN [Concomitant]
     Active Substance: BUPROPION HYDROCHLORIDE
     Indication: DEPRESSION
     Dosage: 100 MG, 3X/DAY (1 (BF, L,D))
     Dates: start: 2003
  23. FISH OIL OMEGA 3 [Concomitant]
     Active Substance: FISH OIL
     Indication: GASTRIC BYPASS
     Dosage: UNK, 1X/DAY ((FISH OIL-1000 MG/OMEGA 3-300 MG) (1 (L)))
     Route: 048
     Dates: start: 2002
  24. DOCUSATE [Concomitant]
     Active Substance: DOCUSATE
     Dosage: UNK
  25. DULCOLAX NOS [Concomitant]
     Active Substance: BISACODYL OR DOCUSATE SODIUM
     Indication: FAECES HARD
     Dosage: 100 MG, 3X/DAY
     Route: 048
  26. ZINC SULFATE [Concomitant]
     Active Substance: ZINC SULFATE\ZINC SULFATE ANHYDROUS
     Dosage: 50 MG, UNK
  27. ZINC SULFATE [Concomitant]
     Active Substance: ZINC SULFATE\ZINC SULFATE ANHYDROUS
     Dosage: 220 MG, 2X/WEEK
     Route: 048
  28. LYRICA [Suspect]
     Active Substance: PREGABALIN
     Indication: FIBROMYALGIA
     Dosage: 50 MG, 1X/DAY (IN PM)
     Route: 048
  29. IBUPROFEN. [Concomitant]
     Active Substance: IBUPROFEN
     Indication: PAIN
     Dosage: 400 MG, 4X/DAY  (2 (BF, L, D, BT))
  30. BUPROPION. [Concomitant]
     Active Substance: BUPROPION
     Dosage: 100 MG, 3X/DAY
     Route: 048

REACTIONS (1)
  - Drug ineffective [Unknown]
